FAERS Safety Report 24994588 (Version 1)
Quarter: 2025Q1

REPORT INFORMATION
  Report Type: Spontaneous
  Country: US (occurrence: None)
  Receive Date: 20250220
  Receipt Date: 20250220
  Transmission Date: 20250408
  Serious: Yes (Disabling)
  Sender: FDA-CTU
  Company Number: None

PATIENT
  Age: 48 Year
  Sex: Female
  Weight: 80.1 kg

DRUGS (7)
  1. LEQVIO [Suspect]
     Active Substance: INCLISIRAN SODIUM
     Indication: Type IIa hyperlipidaemia
     Dates: start: 20240419, end: 20250117
  2. TELMISARTAN [Concomitant]
     Active Substance: TELMISARTAN
  3. PITAVASTATIN [Concomitant]
     Active Substance: PITAVASTATIN
  4. NEBIVOLOL [Concomitant]
     Active Substance: NEBIVOLOL
  5. ASPIRIN [Concomitant]
     Active Substance: ASPIRIN
  6. SEMAGLUTIDE [Concomitant]
     Active Substance: SEMAGLUTIDE
  7. ZYRTEC [Concomitant]
     Active Substance: CETIRIZINE HYDROCHLORIDE

REACTIONS (7)
  - Injection site reaction [None]
  - Injection site pain [None]
  - Injection site erythema [None]
  - Sinusitis [None]
  - Arthralgia [None]
  - Pain in extremity [None]
  - Asthma [None]

NARRATIVE: CASE EVENT DATE: 20250117
